FAERS Safety Report 11358593 (Version 1)
Quarter: 2015Q3

REPORT INFORMATION
  Report Type: Spontaneous
  Country: US (occurrence: US)
  Receive Date: 20150803
  Receipt Date: 20150803
  Transmission Date: 20151125
  Serious: No
  Sender: FDA-Public Use
  Company Number: US-ELI_LILLY_AND_COMPANY-US200907005730

PATIENT
  Sex: Female
  Weight: 72.56 kg

DRUGS (1)
  1. ZYPREXA [Suspect]
     Active Substance: OLANZAPINE
     Dosage: 10 MG, UNK

REACTIONS (9)
  - Pain in extremity [Unknown]
  - Weight decreased [Unknown]
  - Pollakiuria [Unknown]
  - Chromaturia [Unknown]
  - Vein disorder [Unknown]
  - Therapeutic response unexpected [Unknown]
  - Pyrexia [Unknown]
  - Infrequent bowel movements [Unknown]
  - Somnolence [Unknown]
